FAERS Safety Report 8548137 (Version 4)
Quarter: 2013Q4

REPORT INFORMATION
  Report Type: Other
  Country: BE (occurrence: BE)
  Receive Date: 20120507
  Receipt Date: 20131209
  Transmission Date: 20140711
  Serious: Yes (Death)
  Sender: FDA-Public Use
  Company Number: BE-BRISTOL-MYERS SQUIBB COMPANY-16559957

PATIENT
  Age: 38 Year
  Sex: Male
  Weight: 57 kg

DRUGS (5)
  1. STOCRIN CAPS [Suspect]
     Indication: HIV INFECTION
     Dosage: AT NIGHT
     Route: 048
     Dates: start: 200902, end: 20090508
  2. ISONIAZIDE [Interacting]
     Indication: HIV INFECTION
     Route: 065
     Dates: start: 20090403, end: 20090508
  3. ETHAMBUTOL HCL [Concomitant]
     Dates: start: 20090403
  4. PYRAZINAMIDE [Concomitant]
     Dates: start: 20090403
  5. RIFAMPIN [Concomitant]
     Dates: start: 20090403

REACTIONS (2)
  - Coma [Fatal]
  - Drug interaction [Fatal]
